FAERS Safety Report 9914306 (Version 1)
Quarter: 2014Q1

REPORT INFORMATION
  Report Type: Spontaneous
  Country: US (occurrence: None)
  Receive Date: 20140219
  Receipt Date: 20140219
  Transmission Date: 20141002
  Serious: Yes (Disabling)
  Sender: FDA-Public Use
  Company Number: None

PATIENT
  Age: 31 Year
  Sex: Male
  Weight: 79.38 kg

DRUGS (1)
  1. VITALIKOR [Suspect]
     Indication: WEIGHT CONTROL

REACTIONS (5)
  - Drug dependence [None]
  - Erectile dysfunction [None]
  - Infertility [None]
  - Blood testosterone decreased [None]
  - Therapy cessation [None]
